FAERS Safety Report 12809217 (Version 2)
Quarter: 2018Q2

REPORT INFORMATION
  Report Type: Report from Study
  Country: DE (occurrence: DE)
  Receive Date: 20161004
  Receipt Date: 20180525
  Transmission Date: 20180711
  Serious: Yes (Hospitalization, Disabling)
  Sender: FDA-Public Use
  Company Number: DE-ASTRAZENECA-2016SF02703

PATIENT
  Age: 27643 Day
  Sex: Male

DRUGS (12)
  1. ASPIRIN. [Suspect]
     Active Substance: ASPIRIN
     Indication: THROMBOSIS PROPHYLAXIS
     Dosage: 100 MG MAINTANANCE THERAPY
     Route: 048
     Dates: end: 20150709
  2. ASPIRIN. [Suspect]
     Active Substance: ASPIRIN
     Indication: ACUTE CORONARY SYNDROME
     Dosage: 100 MG MAINTANANCE THERAPY
     Route: 048
     Dates: end: 20150709
  3. TICAGRELOR. [Suspect]
     Active Substance: TICAGRELOR
     Indication: ACUTE CORONARY SYNDROME
     Route: 048
     Dates: start: 20150602
  4. METFORMIN [Concomitant]
     Active Substance: METFORMIN HYDROCHLORIDE
     Dosage: 663 MG
     Route: 065
  5. BISOPROLOL [Concomitant]
     Active Substance: BISOPROLOL
  6. LORAZEPAM. [Concomitant]
     Active Substance: LORAZEPAM
  7. TICAGRELOR. [Suspect]
     Active Substance: TICAGRELOR
     Indication: THROMBOSIS PROPHYLAXIS
     Route: 048
     Dates: start: 20150602
  8. PANTOPRAZOLE SODIUM. [Concomitant]
     Active Substance: PANTOPRAZOLE SODIUM
     Route: 065
  9. HYDROCHLOROTHIAZIDE. [Concomitant]
     Active Substance: HYDROCHLOROTHIAZIDE
  10. ATORVASTATIN [Concomitant]
     Active Substance: ATORVASTATIN
  11. CANDESARTAN. [Concomitant]
     Active Substance: CANDESARTAN
  12. SITAGLIPTIN [Concomitant]
     Active Substance: SITAGLIPTIN

REACTIONS (4)
  - Disease progression [Not Recovered/Not Resolved]
  - Angina pectoris [Not Recovered/Not Resolved]
  - Ejection fraction decreased [Not Recovered/Not Resolved]
  - Bundle branch block left [Not Recovered/Not Resolved]

NARRATIVE: CASE EVENT DATE: 20150907
